FAERS Safety Report 23015801 (Version 2)
Quarter: 2023Q4

REPORT INFORMATION
  Report Type: Report from Study
  Country: NL (occurrence: NL)
  Receive Date: 20231002
  Receipt Date: 20231016
  Transmission Date: 20240109
  Serious: Yes (Death, Other)
  Sender: FDA-Public Use
  Company Number: NL-ABBVIE-5429187

PATIENT
  Age: 82 Year
  Sex: Male

DRUGS (11)
  1. CARBIDOPA\LEVODOPA [Suspect]
     Active Substance: CARBIDOPA\LEVODOPA
     Indication: Parkinson^s disease
     Dosage: REMAINS AT 24 HOURS
     Route: 050
     Dates: start: 20170714
  2. CARBIDOPA\LEVODOPA [Suspect]
     Active Substance: CARBIDOPA\LEVODOPA
     Dosage: MD: 3.0 ML, CD: 3.8 ML/H, ED: 2.5 ML, ND: 6.0 ML, CND: 2.5 ML/HR, END: 1.0 ML, REMAINS AT 24 HOURS
     Route: 050
  3. CARBIDOPA\LEVODOPA [Suspect]
     Active Substance: CARBIDOPA\LEVODOPA
     Dosage: MD: 3.0 ML, CD: 3.8 ML/H, ED: 2.5 ML?DURATION TEXT: REMAINS AT 24 HOURS
     Route: 050
  4. CARBIDOPA\LEVODOPA [Suspect]
     Active Substance: CARBIDOPA\LEVODOPA
     Dosage: MD: 3.0 ML, CD: 2.0 ML/H, ED: 2.5 ML?DURATION TEXT: REMAINS AT 24 HOURS
     Route: 050
  5. CARBIDOPA\LEVODOPA [Suspect]
     Active Substance: CARBIDOPA\LEVODOPA
     Dosage: ND: 0.0 ML, CND: 1.5 ML/HR, END: 1.0 ML?DURATION TEXT: REMAINS AT 24 HOURS
     Route: 050
     Dates: end: 20231001
  6. CARBIDOPA\LEVODOPA [Suspect]
     Active Substance: CARBIDOPA\LEVODOPA
     Dosage: MD: 3.0 ML, CD: 3.8 ML/H, ED: 2.5 ML
     Route: 050
  7. CARBIDOPA\LEVODOPA [Suspect]
     Active Substance: CARBIDOPA\LEVODOPA
     Dosage: MD: 3.0 ML, CD: 2.7 ML/H, ED: 2.5 ML?DURATION TEXT: REMAINS AT 16 HOURS
     Route: 050
  8. CARBIDOPA\LEVODOPA [Suspect]
     Active Substance: CARBIDOPA\LEVODOPA
     Dosage: MD: 3.0 ML, CD: 2.7 ML/H, ED: 2.5 ML
     Route: 050
  9. CARBIDOPA\LEVODOPA [Suspect]
     Active Substance: CARBIDOPA\LEVODOPA
     Dosage: MD: 3.0 ML, CD: 3.8 ML/H, ED: 2.5 ML, ND: 6.0 ML, CND: 2.5 ML/HR, END: 1.0 ML?DURATION TEXT: REMA...
     Route: 050
  10. SINEMET CR [Concomitant]
     Active Substance: CARBIDOPA\LEVODOPA
     Indication: Product used for unknown indication
     Dosage: SINEMET CR, FORM STRENGTH: 125 MILLIGRAM
  11. BENSERAZIDE HYDROCHLORIDE\LEVODOPA [Concomitant]
     Active Substance: BENSERAZIDE HYDROCHLORIDE\LEVODOPA
     Indication: Product used for unknown indication

REACTIONS (8)
  - Hip fracture [Not Recovered/Not Resolved]
  - Dysphagia [Not Recovered/Not Resolved]
  - Fall [Fatal]
  - Shoulder fracture [Not Recovered/Not Resolved]
  - General physical health deterioration [Not Recovered/Not Resolved]
  - Impaired quality of life [Not Recovered/Not Resolved]
  - Bedridden [Not Recovered/Not Resolved]
  - Fall [Recovered/Resolved]

NARRATIVE: CASE EVENT DATE: 20230925
